FAERS Safety Report 4522805-9 (Version None)
Quarter: 2004Q4

REPORT INFORMATION
  Report Type: 
  Country: None (occurrence: None)
  Receive Date: 20041209
  Receipt Date: 20041122
  Transmission Date: 20050328
  Serious: Yes (Hospitalization)
  Sender: FDA-Public Use
  Company Number: JP-MERCK-0411USA04187

PATIENT
  Age: 61 Year
  Sex: Male

DRUGS (3)
  1. PEPCID [Suspect]
     Route: 041
     Dates: start: 20041001, end: 20041112
  2. SOLITA T-3 [Concomitant]
     Route: 041
     Dates: start: 20041001, end: 20041112
  3. NEOLAMIN [Concomitant]
     Route: 041
     Dates: start: 20041001, end: 20041112

REACTIONS (7)
  - INFUSION SITE REACTION [None]
  - INJECTION SITE EXTRAVASATION [None]
  - INJECTION SITE VESICLES [None]
  - NECROSIS [None]
  - SKIN BACTERIAL INFECTION [None]
  - SKIN NECROSIS [None]
  - SKIN ULCER [None]
